FAERS Safety Report 18628506 (Version 3)
Quarter: 2021Q3

REPORT INFORMATION
  Report Type: Spontaneous
  Country: ES (occurrence: ES)
  Receive Date: 20201217
  Receipt Date: 20210830
  Transmission Date: 20211014
  Serious: Yes (Death, Life-Threatening, Hospitalization, Other)
  Sender: FDA-Public Use
  Company Number: ES-CELGENEUS-ESP-20201200019

PATIENT
  Age: 70 Year
  Sex: Male
  Weight: 68.5 kg

DRUGS (11)
  1. MLN4924 [Suspect]
     Active Substance: PEVONEDISTAT
     Route: 041
     Dates: start: 20191128, end: 20191128
  2. AZACITIDINE. [Suspect]
     Active Substance: AZACITIDINE
     Indication: ACUTE MYELOID LEUKAEMIA
     Route: 058
     Dates: start: 20191126
  3. MLN4924 [Suspect]
     Active Substance: PEVONEDISTAT
     Route: 041
     Dates: start: 20191226
  4. ISAVUCONAZOLE [Concomitant]
     Active Substance: ISAVUCONAZOLE
     Indication: PRODUCT USED FOR UNKNOWN INDICATION
     Route: 065
     Dates: start: 20191118, end: 20200111
  5. MLN4924 [Suspect]
     Active Substance: PEVONEDISTAT
     Route: 041
     Dates: start: 20191130, end: 20191130
  6. CHLORHEXIDINE [Concomitant]
     Active Substance: CHLORHEXIDINE
     Indication: PRODUCT USED FOR UNKNOWN INDICATION
     Route: 065
     Dates: start: 20191118, end: 20200111
  7. OMEPRAZOLE. [Concomitant]
     Active Substance: OMEPRAZOLE
     Indication: PRODUCT USED FOR UNKNOWN INDICATION
     Route: 065
     Dates: start: 20191118, end: 20200110
  8. FLUTICASONE. [Concomitant]
     Active Substance: FLUTICASONE
     Indication: PRODUCT USED FOR UNKNOWN INDICATION
     Route: 065
     Dates: start: 20190716, end: 20200112
  9. MLN4924 [Suspect]
     Active Substance: PEVONEDISTAT
     Indication: ACUTE MYELOID LEUKAEMIA
     Route: 041
     Dates: start: 20191122
  10. NYSTATIN. [Concomitant]
     Active Substance: NYSTATIN
     Indication: PRODUCT USED FOR UNKNOWN INDICATION
     Route: 065
     Dates: start: 20191118, end: 20200111
  11. TIOTROPIUM [Concomitant]
     Active Substance: TIOTROPIUM
     Indication: PRODUCT USED FOR UNKNOWN INDICATION
     Route: 065
     Dates: start: 20191118, end: 20200112

REACTIONS (3)
  - Thyroid gland abscess [Not Recovered/Not Resolved]
  - Pneumonia staphylococcal [Fatal]
  - Pneumonia pseudomonal [Not Recovered/Not Resolved]

NARRATIVE: CASE EVENT DATE: 20191227
